FAERS Safety Report 9842151 (Version 1)
Quarter: 2014Q1

REPORT INFORMATION
  Report Type: Report from Study
  Country: US (occurrence: US)
  Receive Date: 20140124
  Receipt Date: 20140124
  Transmission Date: 20141002
  Serious: No
  Sender: FDA-Public Use
  Company Number: US-ALEXION-A201400090

PATIENT
  Age: 69 Year
  Sex: Female

DRUGS (20)
  1. SOLIRIS [Suspect]
     Indication: PAROXYSMAL NOCTURNAL HAEMOGLOBINURIA
     Dosage: UNK
     Route: 042
     Dates: start: 20110103
  2. SOLIRIS [Suspect]
     Dosage: 900 MG, Q2W
     Route: 042
  3. FOLIC ACID [Concomitant]
     Indication: PRODUCT USED FOR UNKNOWN INDICATION
     Dosage: 1 MG, QD
     Route: 048
     Dates: start: 20100825
  4. VITAMIN D [Concomitant]
     Indication: PRODUCT USED FOR UNKNOWN INDICATION
     Dosage: 50,000 UNITS, QOW
     Dates: start: 20101103
  5. PREDNISONE [Concomitant]
     Indication: STEROID THERAPY
     Dosage: 30 MG, QD
     Dates: start: 20101209, end: 20110305
  6. PREDNISONE [Concomitant]
     Dosage: 40 MG, QD
     Dates: start: 20110214, end: 20110305
  7. PREDNISONE [Concomitant]
     Dosage: 20 MG, QD
     Dates: start: 20110305, end: 20110322
  8. PREDNISONE [Concomitant]
     Dosage: 15 MG, QD
     Dates: start: 20110322, end: 20110411
  9. PREDNISONE [Concomitant]
     Dosage: 10 MG, QD
     Dates: start: 20110411, end: 20110504
  10. PREDNISONE [Concomitant]
     Dosage: 10 MG ALTERNATING 5 MG, QOD
     Dates: start: 20110504, end: 20110614
  11. PREDNISONE [Concomitant]
     Dosage: 5 MG, QD
     Dates: start: 20110628, end: 20110715
  12. IRON [Concomitant]
     Indication: MINERAL SUPPLEMENTATION
     Dosage: 325 MG, BID
     Dates: start: 20110124
  13. ENALAPRIL [Concomitant]
     Indication: HYPERTENSION
     Dosage: 10 MG, BID
     Dates: start: 20110224
  14. BABY ASPIRIN [Concomitant]
     Indication: ANTICOAGULANT THERAPY
     Dosage: 81 MG, QD
     Dates: start: 20110411, end: 20110420
  15. BABY ASPIRIN [Concomitant]
     Dosage: 81 MG, QD
     Dates: start: 20121102
  16. FLONASE [Concomitant]
     Indication: PRODUCT USED FOR UNKNOWN INDICATION
     Dosage: 1 PUFF, EACH NOSTRIL
     Dates: start: 20120831, end: 20121001
  17. MECLIZINE [Concomitant]
     Indication: PRODUCT USED FOR UNKNOWN INDICATION
     Dosage: 12.5 MG, 1-2 TABS, PRN
     Dates: start: 20120831
  18. Z-PAK [Concomitant]
     Indication: PRODUCT USED FOR UNKNOWN INDICATION
     Dosage: 2 TABS ONE DAY, 1 DAILY X^S 4
     Dates: start: 20120831
  19. METFORMIN [Concomitant]
     Indication: PRODUCT USED FOR UNKNOWN INDICATION
     Dosage: 500 MG, BID
     Dates: start: 20121012
  20. WARFARIN [Concomitant]
     Indication: ANTICOAGULANT THERAPY
     Dosage: 5 MG ALTERNATING WITH 7.5 MG
     Dates: start: 20130929

REACTIONS (7)
  - Pain of skin [Not Recovered/Not Resolved]
  - Dysphagia [Unknown]
  - Dyspnoea [Unknown]
  - Haemoglobinuria [Unknown]
  - Acne [Unknown]
  - Headache [Unknown]
  - Jaundice [Unknown]
